FAERS Safety Report 21544767 (Version 1)
Quarter: 2022Q4

REPORT INFORMATION
  Report Type: Spontaneous
  Country: US (occurrence: None)
  Receive Date: 20221101
  Receipt Date: 20221101
  Transmission Date: 20230113
  Serious: Yes (Death)
  Sender: FDA-Public Use
  Company Number: None

PATIENT
  Age: 78 Year
  Sex: Female

DRUGS (9)
  1. REBIF [Suspect]
     Active Substance: INTERFERON BETA-1A
     Indication: Multiple sclerosis
     Dosage: OTHER STRENGTH : 44MCG/0.5ML;?FREQUENCY : DAILY;?
     Route: 058
     Dates: end: 20221101
  2. ASPIRIN [Concomitant]
     Active Substance: ASPIRIN
  3. CALCIUM ACETATE [Concomitant]
     Active Substance: CALCIUM ACETATE
  4. GABAPENTIN [Concomitant]
     Active Substance: GABAPENTIN
  5. KEPPRA [Concomitant]
     Active Substance: LEVETIRACETAM
  6. VITAMINS [Concomitant]
     Active Substance: VITAMINS
  7. MODERNA COVID-19 VACCINE [Concomitant]
     Active Substance: ELASOMERAN
  8. TRAMADOL [Concomitant]
     Active Substance: TRAMADOL
  9. TYLENOL [Concomitant]
     Active Substance: ACETAMINOPHEN

REACTIONS (1)
  - Death [None]
